FAERS Safety Report 4541923-2 (Version None)
Quarter: 2004Q4

REPORT INFORMATION
  Report Type: 
  Country: None (occurrence: None)
  Receive Date: 20041227
  Receipt Date: 20041217
  Transmission Date: 20050328
  Serious: Yes (Hospitalization, Other)
  Sender: FDA-Public Use
  Company Number: 2004-12-0795

PATIENT
  Age: 61 Year
  Sex: Male
  Weight: 80 kg

DRUGS (1)
  1. VIRAFERONPEG [Suspect]
     Dosage: SUBCUTANEOUS
     Route: 058
     Dates: start: 20040728, end: 20040928

REACTIONS (2)
  - DIABETES MELLITUS [None]
  - SARCOIDOSIS [None]
